FAERS Safety Report 6986071-7 (Version None)
Quarter: 2010Q3

REPORT INFORMATION
  Report Type: 
  Country: None (occurrence: None)
  Receive Date: 20100910
  Receipt Date: 20100831
  Transmission Date: 20110219
  Serious: Yes (Disabling)
  Sender: FDA-Public Use
  Company Number: DSA_43844_2010

PATIENT
  Sex: Female

DRUGS (8)
  1. XENAZINE [Suspect]
     Indication: MEIGE'S SYNDROME
     Dosage: 12.5 MG TID ORAL
     Route: 048
     Dates: end: 20100513
  2. AMANTADINE [Concomitant]
  3. GLIPIZIDE [Concomitant]
  4. STALEVO 100 [Concomitant]
  5. CLONAZEPAM [Concomitant]
  6. DETROL [Concomitant]
  7. REQUIP [Concomitant]
  8. UNSPECIFIED SLEEP MEDICATION [Concomitant]

REACTIONS (2)
  - GAIT DISTURBANCE [None]
  - LETHARGY [None]
